FAERS Safety Report 20774447 (Version 1)
Quarter: 2022Q2

REPORT INFORMATION
  Report Type: Spontaneous
  Country: US (occurrence: US)
  Receive Date: 20220502
  Receipt Date: 20220502
  Transmission Date: 20220721
  Serious: No
  Sender: FDA-Public Use
  Company Number: US-Vifor (International) Inc.-VIT-2022-02473

PATIENT
  Age: 75 Year
  Sex: Female

DRUGS (1)
  1. VELTASSA [Suspect]
     Active Substance: PATIROMER
     Indication: Hyperkalaemia
     Dosage: DISSOLVE CONTENTS OF 1 PACKET INTO 1/3 C
     Route: 048
     Dates: start: 20220215

REACTIONS (2)
  - Protein total decreased [Unknown]
  - Product dose omission issue [Unknown]
